FAERS Safety Report 9871353 (Version 1)
Quarter: 2014Q1

REPORT INFORMATION
  Report Type: Spontaneous
  Country: GB (occurrence: GB)
  Receive Date: 20140205
  Receipt Date: 20140205
  Transmission Date: 20141002
  Serious: Yes (Other)
  Sender: FDA-Public Use
  Company Number: GB-TEVA-457896ISR

PATIENT
  Age: 38 Year
  Sex: Female

DRUGS (2)
  1. TOPIRAMATE [Suspect]
     Indication: POST CONCUSSION SYNDROME
     Dosage: 25 MG ONCE A DAY ONE WEEK, THEN TWICE A DAY
     Route: 048
     Dates: start: 201312, end: 20140108
  2. AMITRIPTYLINE [Suspect]

REACTIONS (1)
  - Angle closure glaucoma [Recovering/Resolving]
